FAERS Safety Report 18248243 (Version 1)
Quarter: 2020Q3

REPORT INFORMATION
  Report Type: Spontaneous
  Country: US (occurrence: US)
  Receive Date: 20200909
  Receipt Date: 20200909
  Transmission Date: 20201103
  Serious: No
  Sender: FDA-Public Use
  Company Number: US-MYLANLABS-2020M1075137

PATIENT
  Sex: Female
  Weight: 79 kg

DRUGS (1)
  1. ESTRADIOL TABLETS, USP [Suspect]
     Active Substance: ESTRADIOL
     Indication: HORMONE REPLACEMENT THERAPY
     Dosage: UNK
     Route: 048

REACTIONS (2)
  - Breast cyst [Recovering/Resolving]
  - Breast mass [Recovering/Resolving]
